FAERS Safety Report 14239216 (Version 1)
Quarter: 2017Q4

REPORT INFORMATION
  Report Type: Spontaneous
  Country: US (occurrence: US)
  Receive Date: 20171130
  Receipt Date: 20171130
  Transmission Date: 20180321
  Serious: Yes (Other)
  Sender: FDA-Public Use
  Company Number: US-DUSA PHARMACEUTICALS, INC.-2036373

PATIENT
  Age: 70 Year
  Sex: Male

DRUGS (3)
  1. LEVOTHYROXINE. [Concomitant]
     Active Substance: LEVOTHYROXINE
  2. ALBUTEROL. [Concomitant]
     Active Substance: ALBUTEROL
  3. LEVULAN KERASTICK [Suspect]
     Active Substance: AMINOLEVULINIC ACID HYDROCHLORIDE
     Indication: ACTINIC KERATOSIS
     Route: 061

REACTIONS (4)
  - Application site vesicles [Unknown]
  - Application site erythema [Unknown]
  - Application site exfoliation [Unknown]
  - Application site pain [Unknown]
